FAERS Safety Report 7442634-6 (Version None)
Quarter: 2011Q2

REPORT INFORMATION
  Report Type: 
  Country: None (occurrence: None)
  Receive Date: 20110428
  Receipt Date: 20110419
  Transmission Date: 20111010
  Serious: Yes (Other)
  Sender: FDA-Public Use
  Company Number: BR-ELI_LILLY_AND_COMPANY-BR201104003904

PATIENT
  Sex: Female
  Weight: 94 kg

DRUGS (10)
  1. HUMALOG [Suspect]
     Dosage: 40 IU, QD
     Route: 065
  2. SIMVASTATIN [Concomitant]
     Indication: BLOOD CHOLESTEROL INCREASED
     Dosage: 20 MG, QD
  3. BENICAR [Concomitant]
     Indication: HYPERTENSION
     Dosage: 40 MG, QD
     Route: 065
  4. HUMALOG MIX 75/25 [Suspect]
     Indication: TYPE 2 DIABETES MELLITUS
     Dosage: 34 IU, EACH MORNING
     Route: 065
  5. FLUOXETINE HYDROCHLORIDE [Suspect]
     Indication: ANXIETY
     Dosage: 20 MG, QD
     Route: 065
  6. METFORMIN [Concomitant]
     Indication: DIABETES MELLITUS
     Dosage: UNK, QD
     Route: 065
  7. HUMALOG MIX 75/25 [Suspect]
     Dosage: 24 IU, EACH EVENING
     Route: 065
  8. HUMALOG [Suspect]
     Indication: TYPE 2 DIABETES MELLITUS
     Dosage: 34 IU, EACH MORNING
     Route: 065
  9. HUMALOG [Suspect]
     Dosage: 24 IU, EACH EVENING
     Route: 065
  10. HUMALOG MIX 75/25 [Suspect]
     Dosage: 40 IU, QD
     Route: 065

REACTIONS (3)
  - TREMOR [None]
  - HYPOGLYCAEMIA [None]
  - BLOOD GLUCOSE INCREASED [None]
